FAERS Safety Report 6073387-4 (Version None)
Quarter: 2009Q1

REPORT INFORMATION
  Report Type: 
  Country: None (occurrence: None)
  Receive Date: 20090205
  Receipt Date: 20090128
  Transmission Date: 20090719
  Serious: Yes (Hospitalization)
  Sender: FDA-Public Use
  Company Number: GXKR2009DE01245

PATIENT
  Age: 40 Year
  Sex: Female

DRUGS (1)
  1. TRIAMCINOLONE [Suspect]
     Indication: NECK PAIN
     Dosage: EPIDURAL
     Route: 008

REACTIONS (13)
  - ASTHENIA [None]
  - CEREBELLAR SYNDROME [None]
  - DYSAESTHESIA [None]
  - EMBOLISM [None]
  - HYPERPATHIA [None]
  - HYPOAESTHESIA [None]
  - HYPOREFLEXIA [None]
  - IMMEDIATE POST-INJECTION REACTION [None]
  - MOTOR DYSFUNCTION [None]
  - MUSCULAR WEAKNESS [None]
  - PARAESTHESIA [None]
  - SPINAL CORD ISCHAEMIA [None]
  - THROMBOSIS [None]
